FAERS Safety Report 5847046-4 (Version None)
Quarter: 2008Q3

REPORT INFORMATION
  Report Type: 
  Country: None (occurrence: None)
  Receive Date: 20080815
  Receipt Date: 20080805
  Transmission Date: 20090109
  Serious: Yes (Other)
  Sender: FDA-Public Use
  Company Number: US-PFIZER INC-2008065978

PATIENT
  Sex: Female
  Weight: 93 kg

DRUGS (3)
  1. GABAPENTIN [Suspect]
  2. LYRICA [Suspect]
     Indication: FIBROMYALGIA
     Route: 048
  3. ANTIDEPRESSANTS [Concomitant]
     Route: 048

REACTIONS (2)
  - DEPRESSION [None]
  - SUICIDAL IDEATION [None]
